FAERS Safety Report 4498371-3 (Version None)
Quarter: 2004Q4

REPORT INFORMATION
  Report Type: 
  Country: None (occurrence: None)
  Receive Date: 20041105
  Receipt Date: 20041020
  Transmission Date: 20050328
  Serious: Yes (Life-Threatening, Other)
  Sender: FDA-Public Use
  Company Number: 2000-DE-U0038

PATIENT
  Age: 51 Year
  Sex: Female

DRUGS (1)
  1. PRAMIPEXOLE (PRAMIPEXOLE DIHYDROCHLORIDE) (TA) (PRAMIPEXOLE) [Suspect]
     Dosage: PO
     Route: 048
     Dates: start: 19970117, end: 20000117

REACTIONS (2)
  - SOMNOLENCE [None]
  - SUDDEN ONSET OF SLEEP [None]
